FAERS Safety Report 21856987 (Version 2)
Quarter: 2023Q1

REPORT INFORMATION
  Report Type: Spontaneous
  Country: FR (occurrence: FR)
  Receive Date: 20230113
  Receipt Date: 20230202
  Transmission Date: 20230418
  Serious: Yes (Hospitalization, Other)
  Sender: FDA-Public Use
  Company Number: FR-NOVOPROD-1010445

PATIENT
  Age: 14 Year
  Sex: Male

DRUGS (1)
  1. NORDITROPIN [Suspect]
     Active Substance: SOMATROPIN
     Indication: Product used for unknown indication
     Dosage: 0.25 MG, QD
     Dates: start: 2011

REACTIONS (10)
  - Leukaemia [Unknown]
  - Syncope [Unknown]
  - Contusion [Unknown]
  - Tooth fracture [Unknown]
  - Osteoporosis [Unknown]
  - Weight decreased [Not Recovered/Not Resolved]
  - Epistaxis [Unknown]
  - Visual impairment [Unknown]
  - Colour blindness [Unknown]
  - Off label use [Unknown]
